FAERS Safety Report 8267545-8 (Version None)
Quarter: 2012Q2

REPORT INFORMATION
  Report Type: 
  Country: None (occurrence: None)
  Receive Date: 20120409
  Receipt Date: 20120405
  Transmission Date: 20120825
  Serious: Yes (Life-Threatening, Hospitalization)
  Sender: FDA-Public Use
  Company Number: CN-JNJFOC-20120309741

PATIENT
  Age: 47 Year
  Sex: Male

DRUGS (3)
  1. DURAGESIC-100 [Suspect]
     Indication: HEPATIC PAIN
     Route: 062
     Dates: start: 20110610, end: 20110610
  2. MEPERIDINE HCL [Suspect]
     Indication: HEPATIC PAIN
     Route: 065
  3. BUCINNAZINE [Suspect]
     Indication: HEPATIC PAIN

REACTIONS (13)
  - INCORRECT DRUG ADMINISTRATION DURATION [None]
  - CYANOSIS [None]
  - HEART RATE INCREASED [None]
  - DRUG ADMINISTERED AT INAPPROPRIATE SITE [None]
  - TOXICITY TO VARIOUS AGENTS [None]
  - CARDIO-RESPIRATORY ARREST [None]
  - DIZZINESS [None]
  - BLOOD PRESSURE DECREASED [None]
  - LOSS OF CONSCIOUSNESS [None]
  - VOMITING [None]
  - NAUSEA [None]
  - OXYGEN SATURATION DECREASED [None]
  - BLOOD PRESSURE DIASTOLIC INCREASED [None]
